FAERS Safety Report 24468064 (Version 1)
Quarter: 2024Q4

REPORT INFORMATION
  Report Type: Spontaneous
  Country: US (occurrence: US)
  Receive Date: 20241018
  Receipt Date: 20241018
  Transmission Date: 20250115
  Serious: No
  Sender: Phathom Pharmaceuticals
  Company Number: US-PHATHOM PHARMACEUTICALS INC.-2024PHT00901

PATIENT
  Age: 57 Year
  Sex: Female

DRUGS (10)
  1. VOQUEZNA [Suspect]
     Active Substance: VONOPRAZAN FUMARATE
     Indication: Gastrooesophageal reflux disease
     Dosage: 10 MG, 1X/DAY
     Route: 048
     Dates: start: 20240824, end: 20240907
  2. LOVAZA [Concomitant]
     Active Substance: OMEGA-3-ACID ETHYL ESTERS
  3. WELCHOL [Concomitant]
     Active Substance: COLESEVELAM HYDROCHLORIDE
  4. IVERMECTIN [Concomitant]
     Active Substance: IVERMECTIN
  5. METFORMIN [Concomitant]
     Active Substance: METFORMIN HYDROCHLORIDE
  6. XANAX [Concomitant]
     Active Substance: ALPRAZOLAM
  7. REXULTI [Concomitant]
     Active Substance: BREXPIPRAZOLE
  8. NYSTATIN [Concomitant]
     Active Substance: NYSTATIN
  9. ARMOUR THYROID [Concomitant]
     Active Substance: THYROID, PORCINE
  10. ZOLOFT [Concomitant]
     Active Substance: SERTRALINE HYDROCHLORIDE

REACTIONS (3)
  - Agitation [Recovered/Resolved]
  - Anxiety [Recovered/Resolved]
  - Abdominal distension [Recovered/Resolved]

NARRATIVE: CASE EVENT DATE: 20240831
